FAERS Safety Report 12413450 (Version 6)
Quarter: 2016Q3

REPORT INFORMATION
  Report Type: Spontaneous
  Country: US (occurrence: US)
  Receive Date: 20160527
  Receipt Date: 20160920
  Transmission Date: 20161109
  Serious: Yes (Life-Threatening, Hospitalization, Disabling, Other)
  Sender: FDA-Public Use
  Company Number: US-009507513-1605USA010926

PATIENT
  Sex: Female
  Weight: 87.98 kg

DRUGS (1)
  1. ZOCOR [Suspect]
     Active Substance: SIMVASTATIN
     Indication: HYPERLIPIDAEMIA
     Dosage: 40 MG, QD
     Route: 048
     Dates: start: 20011102, end: 20101219

REACTIONS (12)
  - Ruptured cerebral aneurysm [Not Recovered/Not Resolved]
  - Haemorrhagic stroke [Not Recovered/Not Resolved]
  - Coma [Recovered/Resolved]
  - Cerebral haemorrhage [Not Recovered/Not Resolved]
  - Fatigue [Unknown]
  - Optic nerve injury [Unknown]
  - Peripheral embolism [Unknown]
  - Frustration tolerance decreased [Unknown]
  - Cerebral vasoconstriction [Unknown]
  - Hydrocephalus [Unknown]
  - Pulmonary embolism [Unknown]
  - Pneumonia [Unknown]

NARRATIVE: CASE EVENT DATE: 201012
